FAERS Safety Report 4324355-1 (Version None)
Quarter: 2004Q1

REPORT INFORMATION
  Report Type: 
  Country: None (occurrence: None)
  Receive Date: 20040326
  Receipt Date: 20040203
  Transmission Date: 20041129
  Serious: No
  Sender: FDA-Public Use
  Company Number: US-GLAXOSMITHKLINE-A0496316A

PATIENT
  Age: 6 Year
  Sex: Male

DRUGS (2)
  1. ADVAIR DISKUS 100/50 [Suspect]
     Indication: ASTHMA
     Dosage: 1PUFF TWICE PER DAY
     Route: 055
  2. SINGULAIR [Concomitant]

REACTIONS (5)
  - DISTRACTIBILITY [None]
  - DISTURBANCE IN ATTENTION [None]
  - IMPAIRED HEALING [None]
  - NASOPHARYNGITIS [None]
  - PSYCHOMOTOR HYPERACTIVITY [None]
